FAERS Safety Report 20958523 (Version 1)
Quarter: 2022Q2

REPORT INFORMATION
  Report Type: Spontaneous
  Country: US (occurrence: None)
  Receive Date: 20220614
  Receipt Date: 20220614
  Transmission Date: 20220721
  Serious: Yes (Disabling)
  Sender: FDA-Public Use
  Company Number: None

PATIENT
  Age: 54 Year
  Sex: Female
  Weight: 48.53 kg

DRUGS (12)
  1. NURTEC ODT [Suspect]
     Active Substance: RIMEGEPANT SULFATE
     Indication: Migraine
     Dosage: FREQUENCY : ONCE;?
     Route: 060
     Dates: start: 20220602, end: 20220602
  2. LEVOTHYROXINE [Concomitant]
     Active Substance: LEVOTHYROXINE
  3. LIOTHYRONINE [Concomitant]
     Active Substance: LIOTHYRONINE
  4. PROGESTERONE [Concomitant]
     Active Substance: PROGESTERONE
  5. ESTRADIOL [Concomitant]
     Active Substance: ESTRADIOL
  6. VITAMINS [Concomitant]
     Active Substance: VITAMINS
  7. HERBALS [Concomitant]
     Active Substance: HERBALS
  8. B2 [Concomitant]
  9. JWH-018 [Concomitant]
     Active Substance: JWH-018
  10. VITAMIN D3 [Concomitant]
     Active Substance: CHOLECALCIFEROL
  11. PRASTERONE [Concomitant]
     Active Substance: PRASTERONE
  12. HERBALS\SPIRULINA [Concomitant]
     Active Substance: HERBALS\SPIRULINA

REACTIONS (5)
  - Dizziness [None]
  - Hypersomnia [None]
  - Muscle spasms [None]
  - Discomfort [None]
  - Restlessness [None]

NARRATIVE: CASE EVENT DATE: 20220602
